FAERS Safety Report 4697579-1 (Version None)
Quarter: 2005Q2

REPORT INFORMATION
  Report Type: 
  Country: None (occurrence: None)
  Receive Date: 20050621
  Receipt Date: 20050607
  Transmission Date: 20051028
  Serious: Yes (Other)
  Sender: FDA-Public Use
  Company Number: US_0411107703

PATIENT
  Age: 67 Year
  Sex: Female
  Weight: 72 kg

DRUGS (17)
  1. ZYPREXA [Suspect]
     Dosage: 20 MG DAY
     Dates: start: 20031216, end: 20040801
  2. TENORMIN [Concomitant]
  3. GLIPIZIDE / METFORMIN [Concomitant]
  4. GLYBURIDE [Concomitant]
  5. GLYBURIDE AND METFORMIN HCL [Concomitant]
  6. ROSIGLITAZONE [Concomitant]
  7. AMITRIPTYLINE HCL [Concomitant]
  8. LASIX (FUROSEMIDE   /00032601/) [Concomitant]
  9. GEMFIBROZIL [Concomitant]
  10. HYDROCHLOROTHIAZIDE [Concomitant]
  11. VALSARTAN [Concomitant]
  12. ZOCOR [Concomitant]
  13. GABAPENTIN [Concomitant]
  14. BEXTRA [Concomitant]
  15. CARBAMAZEPINE [Concomitant]
  16. LISINOPRIL (LISINOPRIL   /00894001/) [Concomitant]
  17. PREDNISONE (PREDNISONE  /00044701/) [Concomitant]

REACTIONS (13)
  - AMNESIA [None]
  - CONVULSION [None]
  - DIABETES MELLITUS INADEQUATE CONTROL [None]
  - GLYCOSYLATED HAEMOGLOBIN INCREASED [None]
  - GOITRE [None]
  - HEADACHE [None]
  - HYPOTHYROIDISM [None]
  - INTERVERTEBRAL DISC PROTRUSION [None]
  - LACUNAR INFARCTION [None]
  - LOSS OF CONSCIOUSNESS [None]
  - OBESITY [None]
  - PARKINSON'S DISEASE [None]
  - VISION BLURRED [None]
